FAERS Safety Report 6139007-5 (Version None)
Quarter: 2009Q1

REPORT INFORMATION
  Report Type: 
  Country: None (occurrence: None)
  Receive Date: 20090310
  Receipt Date: 20080613
  Transmission Date: 20090719
  Serious: Yes (Hospitalization)
  Sender: FDA-Public Use
  Company Number: 2008US001147

PATIENT
  Age: 45 Year
  Sex: Female
  Weight: 68 kg

DRUGS (1)
  1. AMEVIVE [Suspect]
     Indication: PSORIASIS
     Dosage: 15 MG, WEEKLY, INTRAMUSCULAR
     Route: 030
     Dates: start: 20050324, end: 20060314

REACTIONS (5)
  - ENDOMETRIAL DISORDER [None]
  - HEPATIC CYST [None]
  - INFECTION [None]
  - PELVIC INFLAMMATORY DISEASE [None]
  - UTERINE POLYP [None]
